FAERS Safety Report 5647308-X (Version None)
Quarter: 2008Q1

REPORT INFORMATION
  Report Type: 
  Country: None (occurrence: None)
  Receive Date: 20080228
  Receipt Date: 20080205
  Transmission Date: 20080703
  Serious: Yes (Hospitalization)
  Sender: FDA-Public Use
  Company Number: FRPFM-S-20080053 - V001

PATIENT

DRUGS (12)
  1. NAVELBINE [Suspect]
     Indication: NON-SMALL CELL LUNG CANCER
     Dosage: EVERY DAY INTRAVENOUS
     Route: 042
  2. ATORVASTATIN CALCIUM [Suspect]
  3. ACETAMINOPHEN [Suspect]
  4. LYSANXIA - PRAZEPRAM [Suspect]
  5. ZOPHREN - ONDENSETRON [Suspect]
  6. TRAMADOL HCL [Suspect]
  7. EMEND [Suspect]
  8. ......................... [Concomitant]
  9. ......................... [Concomitant]
  10. .................... [Concomitant]
  11. .................. [Concomitant]
  12. ................... [Concomitant]

REACTIONS (2)
  - CHOLESTASIS [None]
  - CYTOLYTIC HEPATITIS [None]
